FAERS Safety Report 7005235-X (Version None)
Quarter: 2010Q3

REPORT INFORMATION
  Report Type: 
  Country: None (occurrence: None)
  Receive Date: 20100920
  Receipt Date: 20100920
  Transmission Date: 20110219
  Serious: No
  Sender: FDA-Public Use
  Company Number: None

PATIENT
  Age: 49 Year
  Sex: Male
  Weight: 102.5129 kg

DRUGS (1)
  1. FENTANYL [Suspect]
     Indication: PAIN
     Dosage: ONE PATCH EVERY 72 HOURS CUTANEOUS
     Route: 003
     Dates: start: 20000101, end: 20100913

REACTIONS (9)
  - ANGER [None]
  - DEVICE COLOUR ISSUE [None]
  - EXPOSURE TO CONTAMINATED DEVICE [None]
  - FEELING ABNORMAL [None]
  - MALAISE [None]
  - PRODUCT CONTAMINATION [None]
  - PRODUCT PACKAGING QUANTITY ISSUE [None]
  - PRODUCT TAMPERING [None]
  - WITHDRAWAL SYNDROME [None]
